FAERS Safety Report 8366004-1 (Version None)
Quarter: 2012Q2

REPORT INFORMATION
  Report Type: 
  Country: None (occurrence: None)
  Receive Date: 20120517
  Receipt Date: 20120511
  Transmission Date: 20120825
  Serious: No
  Sender: FDA-Public Use
  Company Number: US-PFIZER INC-2012098515

PATIENT
  Sex: Male
  Weight: 69.388 kg

DRUGS (12)
  1. LIPITOR [Suspect]
     Indication: BLOOD CHOLESTEROL INCREASED
     Dosage: 10 MG, 1X/DAY
     Route: 048
  2. TRAMADOL [Concomitant]
     Indication: PAIN
     Dosage: 50 MG, AS NEEDED
  3. VIDEX EC [Concomitant]
     Indication: HIV INFECTION
  4. ACYCLOVIR [Concomitant]
     Indication: ANTIVIRAL PROPHYLAXIS
     Dosage: 400 MG, TWICE A DAY
  5. VIDEX EC [Concomitant]
     Indication: ACQUIRED IMMUNODEFICIENCY SYNDROME
     Dosage: UNK, QD
     Dates: start: 19960101
  6. ISENTRESS [Concomitant]
     Indication: HIV INFECTION
  7. EDURANT [Concomitant]
     Indication: ACQUIRED IMMUNODEFICIENCY SYNDROME
     Dosage: 25 MG, 1X/DAY
     Dates: start: 19960101
  8. EDURANT [Concomitant]
     Indication: HIV INFECTION
  9. REYATAZ [Concomitant]
     Indication: HIV INFECTION
  10. REYATAZ [Concomitant]
     Indication: ACQUIRED IMMUNODEFICIENCY SYNDROME
     Dosage: 400MG 1X/DAY
     Route: 048
     Dates: start: 19960101
  11. ISENTRESS [Concomitant]
     Indication: ACQUIRED IMMUNODEFICIENCY SYNDROME
     Dosage: 400 MG, UNK
     Dates: start: 19960101
  12. AMBIEN [Concomitant]
     Indication: INSOMNIA
     Dosage: 10 MG AS NEEDED FOR SLEEP

REACTIONS (3)
  - WRONG TECHNIQUE IN DRUG USAGE PROCESS [None]
  - DRUG ADMINISTRATION ERROR [None]
  - MEDICATION RESIDUE [None]
